FAERS Safety Report 23772624 (Version 4)
Quarter: 2025Q2

REPORT INFORMATION
  Report Type: Spontaneous
  Country: JP (occurrence: JP)
  Receive Date: 20240423
  Receipt Date: 20250414
  Transmission Date: 20250717
  Serious: Yes (Death)
  Sender: JOHNSON AND JOHNSON
  Company Number: JP-JNJFOC-20240462830

PATIENT
  Age: 74 Year
  Sex: Female

DRUGS (3)
  1. OPSUMIT [Suspect]
     Active Substance: MACITENTAN
     Indication: Pulmonary arterial hypertension
     Route: 048
     Dates: start: 2020
  2. UPTRAVI [Suspect]
     Active Substance: SELEXIPAG
     Indication: Pulmonary arterial hypertension
     Dosage: 1.2 MG/24 HOURS
     Route: 048
     Dates: start: 2020
  3. REVATIO [Concomitant]
     Active Substance: SILDENAFIL CITRATE
     Indication: Pulmonary arterial hypertension
     Route: 048
     Dates: start: 2018

REACTIONS (3)
  - Pulmonary arterial hypertension [Fatal]
  - Chronic obstructive pulmonary disease [Unknown]
  - Treatment noncompliance [Unknown]
